FAERS Safety Report 8009290-X (Version None)
Quarter: 2011Q4

REPORT INFORMATION
  Report Type: 
  Country: None (occurrence: None)
  Receive Date: 20111221
  Receipt Date: 20111212
  Transmission Date: 20120403
  Serious: Yes (Other)
  Sender: FDA-Public Use
  Company Number: 2011P1014232

PATIENT
  Age: 45 Year
  Sex: Male

DRUGS (1)
  1. PREDNISONE [Suspect]
     Indication: PEMPHIGUS
     Dosage: 2 MG/KG;QD

REACTIONS (1)
  - HALLUCINATION [None]
